FAERS Safety Report 17462937 (Version 2)
Quarter: 2020Q1

REPORT INFORMATION
  Report Type: Spontaneous
  Country: SK (occurrence: SK)
  Receive Date: 20200226
  Receipt Date: 20200309
  Transmission Date: 20200409
  Serious: Yes (Death, Other)
  Sender: FDA-Public Use
  Company Number: SK-SHIRE-SK202007018

PATIENT

DRUGS (2)
  1. FLEBOGAMMA [Concomitant]
     Active Substance: HUMAN IMMUNOGLOBULIN G
     Indication: PRODUCT USED FOR UNKNOWN INDICATION
  2. HYQVIA [Suspect]
     Active Substance: HUMAN IMMUNOGLOBULIN G\HYALURONIDASE RECOMBINANT HUMAN
     Indication: PLASMA CELL MYELOMA
     Dosage: 15G/150ML, 1X A MONTH
     Route: 065
     Dates: start: 20171122

REACTIONS (2)
  - Death [Unknown]
  - Intentional product use issue [Unknown]

NARRATIVE: CASE EVENT DATE: 20200219
